FAERS Safety Report 11048919 (Version 1)
Quarter: 2015Q2

REPORT INFORMATION
  Report Type: Spontaneous
  Country: TR (occurrence: TR)
  Receive Date: 20150420
  Receipt Date: 20150420
  Transmission Date: 20150821
  Serious: Yes (Life-Threatening, Hospitalization)
  Sender: FDA-Public Use
  Company Number: PHHY2015TR045791

PATIENT
  Age: 15 Year
  Sex: Male

DRUGS (3)
  1. OLANZAPINE. [Suspect]
     Active Substance: OLANZAPINE
     Indication: SELF INJURIOUS BEHAVIOUR
     Dosage: 10 MG, QD
     Route: 065
  2. QUETIAPINE [Suspect]
     Active Substance: QUETIAPINE
     Indication: SELF INJURIOUS BEHAVIOUR
     Dosage: 600 MG, QD
     Route: 065
  3. RISPERIDONE. [Suspect]
     Active Substance: RISPERIDONE
     Indication: SELF INJURIOUS BEHAVIOUR
     Dosage: 1 MG, QD
     Route: 065

REACTIONS (12)
  - Hypotension [Recovered/Resolved]
  - Tachypnoea [Recovered/Resolved]
  - Neuroleptic malignant syndrome [Recovered/Resolved]
  - Altered state of consciousness [Recovered/Resolved]
  - Tachycardia [Recovered/Resolved]
  - Hyperthermia [Recovered/Resolved]
  - Pericardial effusion [Recovered/Resolved]
  - Confusional state [Recovered/Resolved]
  - Oculogyric crisis [Recovered/Resolved]
  - Self injurious behaviour [Recovered/Resolved]
  - Hypophagia [Recovered/Resolved]
  - Pyrexia [Recovered/Resolved]
